FAERS Safety Report 4304471-0 (Version None)
Quarter: 2004Q1

REPORT INFORMATION
  Report Type: 
  Country: None (occurrence: None)
  Receive Date: 20040224
  Receipt Date: 20040213
  Transmission Date: 20041129
  Serious: Yes (Disabling)
  Sender: FDA-Public Use
  Company Number: K200400190

PATIENT
  Age: 82 Year
  Sex: Male

DRUGS (5)
  1. ALTACE [Suspect]
     Indication: VENTRICULAR DYSFUNCTION
     Dosage: SEE IMAGE
     Route: 048
     Dates: start: 20031112
  2. . [Concomitant]
  3. BISOPROLOL FUMARATE [Concomitant]
  4. DIGOXIN [Concomitant]
  5. AMIODARONE HCL [Concomitant]

REACTIONS (2)
  - CONSTIPATION [None]
  - SLEEP DISORDER [None]
